FAERS Safety Report 7973784 (Version 4)
Quarter: 2014Q1

REPORT INFORMATION
  Report Type: Spontaneous
  Country: AT (occurrence: AT)
  Receive Date: 20110603
  Receipt Date: 20140213
  Transmission Date: 20141002
  Serious: Yes (Life-Threatening, Hospitalization, Other)
  Sender: FDA-Public Use
  Company Number: AT-PFIZER INC-2011111265

PATIENT
  Age: 27 Year
  Sex: Female

DRUGS (22)
  1. ZELDOX [Suspect]
     Indication: DEPRESSION
     Dosage: 20 - 40 MG, 2X/DAY
     Route: 048
     Dates: start: 20110224
  2. ZELDOX [Suspect]
     Dosage: UNK
  3. ZELDOX [Suspect]
     Dosage: UNK
     Dates: end: 20110317
  4. ZELDOX [Suspect]
     Dosage: UNK
     Dates: start: 20110327
  5. EFECTIN ER [Suspect]
     Indication: DEPRESSION
     Dosage: 150 MG, DAILY
     Route: 048
     Dates: start: 20110225, end: 20110317
  6. NEUROTOP - SLOW RELEASE [Suspect]
     Dosage: 450 MG, DAILY
     Route: 048
     Dates: start: 20110223, end: 20110318
  7. TOPAMAX [Suspect]
     Dosage: 50-75 MG, DAILY
     Route: 048
     Dates: start: 20110302, end: 20110317
  8. ABILIFY [Suspect]
     Dosage: 5 MG, DAILY
     Route: 048
     Dates: start: 20110310, end: 20110317
  9. ABILIFY [Suspect]
     Dosage: 5-10 MG, 1X/DAY
     Dates: start: 20110412, end: 20110426
  10. ABILIFY [Suspect]
     Dosage: 15 MG, 1X/DAY
     Dates: start: 20110427, end: 20110503
  11. ABILIFY [Suspect]
     Dosage: 20 MG, 1X/DAY
     Dates: start: 20110404, end: 20110513
  12. ABILIFY [Suspect]
     Dosage: 15 MG, 1X/DAY
     Dates: start: 20110514
  13. OXAZEPAM [Suspect]
     Dosage: 15 - 75 MG, 1X/DAY
     Route: 048
     Dates: start: 20110125, end: 20110316
  14. OXAZEPAM [Suspect]
     Dosage: 50- 150 MG, 1X/DAY
     Dates: start: 20110317, end: 20110325
  15. SIRDALUD [Suspect]
     Dosage: 6 MG, DAILY
     Route: 048
     Dates: start: 20110215, end: 20110317
  16. PANTOPRAZOLE [Suspect]
     Dosage: 40 MG, 1X/DAY
     Route: 048
     Dates: start: 20110125, end: 20110317
  17. RISPERDAL [Suspect]
     Dosage: UNK
     Dates: start: 20110210, end: 20110221
  18. STABLON [Suspect]
     Dosage: 25 MG, 1X/DAY
     Dates: start: 20110321, end: 20110325
  19. TOLVON [Concomitant]
     Dosage: UNK MG, 1X/DAY, 30 - 60 MG
     Route: 048
     Dates: start: 20110201, end: 20110302
  20. VALPROIC ACID [Concomitant]
     Dosage: UNK MG, 1X/DAY, 500 - 1000 MG
     Dates: start: 20110325, end: 20110417
  21. MIRTAZAPINE [Concomitant]
     Dosage: UNK MG, 1X/DAY, 15 - 30 MG
     Dates: start: 20110125, end: 20110210
  22. QUILONORM RETARD [Concomitant]
     Dosage: UNK MG, 1X/DAY, 450 - 900 MG
     Dates: start: 20110407

REACTIONS (6)
  - Suicide attempt [Recovered/Resolved]
  - Drug withdrawal syndrome [Recovered/Resolved]
  - Leukopenia [Recovered/Resolved]
  - Weight increased [Unknown]
  - Galactorrhoea [Recovered/Resolved]
  - Blood prolactin increased [Unknown]
